FAERS Safety Report 8767297 (Version 2)
Quarter: 2012Q4

REPORT INFORMATION
  Report Type: 
  Country: JP (occurrence: JP)
  Receive Date: 20120904
  Receipt Date: 20120920
  Transmission Date: 20130627
  Serious: Yes (Other)
  Sender: FDA-Public Use
  Company Number: JP-GLAXOSMITHKLINE-B0827244A

PATIENT
  Age: 86 Year
  Sex: Female

DRUGS (1)
  1. SAMTIREL [Suspect]
     Indication: PNEUMOCYSTIS JIROVECI PNEUMONIA
     Dosage: 750MG Twice per day
     Route: 048
     Dates: start: 20120823

REACTIONS (1)
  - Gastric perforation [Not Recovered/Not Resolved]
